FAERS Safety Report 4274435-4 (Version None)
Quarter: 2004Q1

REPORT INFORMATION
  Report Type: 
  Country: None (occurrence: None)
  Receive Date: 20040120
  Receipt Date: 20030415
  Transmission Date: 20041129
  Serious: Yes (Other)
  Sender: FDA-Public Use
  Company Number: US-BRISTOL-MYERS SQUIBB COMPANY-12242939

PATIENT
  Age: 62 Year
  Sex: Female

DRUGS (3)
  1. IFEX [Suspect]
     Indication: LEIOMYOSARCOMA METASTATIC
     Route: 042
  2. PERCOCET [Concomitant]
  3. AMBIEN [Concomitant]

REACTIONS (2)
  - CONFUSIONAL STATE [None]
  - DISORIENTATION [None]
